FAERS Safety Report 6511237-X (Version None)
Quarter: 2009Q4

REPORT INFORMATION
  Report Type: 
  Country: None (occurrence: None)
  Receive Date: 20091222
  Receipt Date: 20090316
  Transmission Date: 20100525
  Serious: No
  Sender: FDA-Public Use
  Company Number: US-ASTRAZENECA-2009UW06830

PATIENT
  Sex: Female

DRUGS (12)
  1. CRESTOR [Suspect]
     Indication: BLOOD CHOLESTEROL INCREASED
     Route: 048
     Dates: start: 20060301, end: 20070301
  2. ZYRTEC [Concomitant]
  3. POTASSIUM [Concomitant]
  4. GABAPENTIN [Concomitant]
  5. DARVOCET [Concomitant]
  6. FLEXERIL [Concomitant]
  7. ZAROXOLYN [Concomitant]
  8. MINICYCLINE [Concomitant]
  9. PAXIL [Concomitant]
  10. LEVOTHYROXINE SODIUM [Concomitant]
  11. TRAZODONE HCL [Concomitant]
  12. MAXZIDE [Concomitant]

REACTIONS (3)
  - MUSCLE ATROPHY [None]
  - MUSCULAR WEAKNESS [None]
  - MYALGIA [None]
